FAERS Safety Report 11683087 (Version 1)
Quarter: 2015Q4

REPORT INFORMATION
  Report Type: Spontaneous
  Country: FR (occurrence: FR)
  Receive Date: 20151029
  Receipt Date: 20151029
  Transmission Date: 20160304
  Serious: Yes (Hospitalization)
  Sender: FDA-Public Use
  Company Number: FR-009507513-1510FRA012665

PATIENT
  Age: 86 Year
  Sex: Female

DRUGS (8)
  1. MEDROL [Suspect]
     Active Substance: METHYLPREDNISOLONE
     Dosage: 8 MG, QD
     Route: 048
  2. ZYRTEC [Suspect]
     Active Substance: CETIRIZINE HYDROCHLORIDE
     Dosage: 10 MG, QD
     Route: 048
  3. POLYETHYLENE GLYCOL 3350. [Suspect]
     Active Substance: POLYETHYLENE GLYCOL 3350
     Indication: PRODUCT USED FOR UNKNOWN INDICATION
     Dosage: 1 DF, QD
     Route: 048
  4. OMEPRAZOLE. [Suspect]
     Active Substance: OMEPRAZOLE
     Dosage: 10 MG, QD
     Route: 048
  5. TERBUTALINE SULFATE. [Suspect]
     Active Substance: TERBUTALINE SULFATE
     Route: 055
  6. ACETAMINOPHEN. [Suspect]
     Active Substance: ACETAMINOPHEN
     Indication: PRODUCT USED FOR UNKNOWN INDICATION
     Route: 048
  7. HALDOL [Suspect]
     Active Substance: HALOPERIDOL
  8. BUDESONIDE. [Suspect]
     Active Substance: BUDESONIDE
     Route: 055

REACTIONS (3)
  - Face oedema [Unknown]
  - Oral herpes [Unknown]
  - Linear IgA disease [Unknown]
